FAERS Safety Report 23197241 (Version 1)
Quarter: 2023Q4

REPORT INFORMATION
  Report Type: Spontaneous
  Country: CN (occurrence: CN)
  Receive Date: 20231117
  Receipt Date: 20231117
  Transmission Date: 20240110
  Serious: Yes (Hospitalization, Disabling)
  Sender: FDA-Public Use
  Company Number: CN-DSJP-DSJ-2023-146794AA

PATIENT
  Age: 54 Year
  Sex: Female
  Weight: 74 kg

DRUGS (5)
  1. ENHERTU [Suspect]
     Active Substance: FAM-TRASTUZUMAB DERUXTECAN-NXKI
     Indication: Chemotherapy
     Dosage: 400 MG, QD
     Route: 041
     Dates: start: 20231030, end: 20231030
  2. SODIUM CHLORIDE [Concomitant]
     Active Substance: SODIUM CHLORIDE
     Indication: Prophylaxis
     Dosage: 10 ML, TID
     Route: 041
     Dates: start: 20231030, end: 20231101
  3. WATER [Concomitant]
     Active Substance: WATER
     Indication: Prophylaxis
     Dosage: 10 ML, QD
     Route: 041
     Dates: start: 20231030, end: 20231030
  4. PALONOSETRON HYDROCHLORIDE [Concomitant]
     Active Substance: PALONOSETRON HYDROCHLORIDE
     Indication: Antiemetic supportive care
     Dosage: 3 DF (3 VIAL), TID
     Route: 041
     Dates: start: 20231030, end: 20231101
  5. DEXTROSE [Concomitant]
     Active Substance: DEXTROSE\DEXTROSE MONOHYDRATE
     Indication: Prophylaxis
     Dosage: 100 ML, QD
     Route: 041
     Dates: start: 20231030, end: 20231030

REACTIONS (4)
  - Electrocardiogram QT interval abnormal [Recovering/Resolving]
  - Electrocardiogram abnormal [Recovering/Resolving]
  - Myocardial ischaemia [Recovering/Resolving]
  - Chest discomfort [Recovering/Resolving]

NARRATIVE: CASE EVENT DATE: 20231102
